FAERS Safety Report 13737192 (Version 1)
Quarter: 2017Q3

REPORT INFORMATION
  Report Type: Spontaneous
  Country: US (occurrence: US)
  Receive Date: 20170710
  Receipt Date: 20170710
  Transmission Date: 20171127
  Serious: No
  Sender: FDA-Public Use
  Company Number: US-SAOL THERAPEUTICS-2016SAO00088

PATIENT
  Age: 51 Year
  Sex: Female
  Weight: 86.17 kg

DRUGS (30)
  1. LIORESAL [Suspect]
     Active Substance: BACLOFEN
     Indication: MUSCLE SPASTICITY
     Dosage: 240 MCG/DAY
     Route: 037
     Dates: end: 20151209
  2. LIORESAL [Suspect]
     Active Substance: BACLOFEN
     Dosage: 320.4 MCG/DAY
     Route: 037
     Dates: start: 20160607
  3. BACLOFEN. [Concomitant]
     Active Substance: BACLOFEN
     Dosage: 30 MG 1X/DAY
     Route: 048
  4. AMPHETAMINE-DEXTROAMPHETAMINE [Concomitant]
     Active Substance: AMPHETAMINE SULFATE\DEXTROAMPHETAMINE
     Dosage: 20 MG, 2X/DAY
     Route: 048
  5. NAPROXEN. [Concomitant]
     Active Substance: NAPROXEN
     Dosage: 250 MG TABLET 1X/DAY
  6. LIORESAL [Suspect]
     Active Substance: BACLOFEN
     Dosage: 276.4 MCG/DAY
     Route: 037
     Dates: start: 20160104, end: 20160125
  7. GABLOFEN [Suspect]
     Active Substance: BACLOFEN
     Dosage: 20,000 MCG/20 ML SOLUTION
     Route: 037
  8. VITAMIN B COMPLEX CAPS [Concomitant]
     Route: 048
  9. DOXEPIN HYDROCHLORIDE. [Concomitant]
     Active Substance: DOXEPIN HYDROCHLORIDE
     Dosage: 10 MG CAP 1X/DAY AT BEDTIME
     Route: 048
  10. BUPROPION HCL ER (XL) [Concomitant]
     Dosage: 150 MG TAB 1X/DAY
  11. PREDNISONE. [Concomitant]
     Active Substance: PREDNISONE
     Dosage: 10 MG TABS 3TABS PO BID X 4D, 2 BID X 4 DAYS, 3 QD X 4D, 2 QD X 4D, 1 QD QOD X 3D, THE STOP
     Route: 048
  12. LIORESAL [Suspect]
     Active Substance: BACLOFEN
     Dosage: 300.1 MCG/DAY
     Route: 037
     Dates: start: 20160311, end: 20160408
  13. VALIUM [Concomitant]
     Active Substance: DIAZEPAM
     Dosage: 5 MG BID PRN
     Route: 048
  14. GABAPENTIN. [Concomitant]
     Active Substance: GABAPENTIN
     Dosage: 300 MG 2X/DAY
     Route: 048
  15. LIORESAL [Suspect]
     Active Substance: BACLOFEN
     Dosage: 315.1 MCG/DAY
     Route: 037
     Dates: start: 20160408, end: 20160607
  16. LOSARTAN POTASSIUM-HYDROCHLOROTHIAZIDE [Concomitant]
     Dosage: 50/12.5 1X/DAY
     Route: 048
  17. BUPROPION HCL ER (XL) [Concomitant]
     Dosage: 300 MG TABL 1X/DAY
  18. NEOSPORIN GU IRRIGANT [Concomitant]
     Dosage: 1 AMP IRRIGANT IN 1 LITER OF NSS; IRRIGATE BLADDER DAILY WITH 60 ML
  19. LIORESAL [Suspect]
     Active Substance: BACLOFEN
     Indication: MULTIPLE SCLEROSIS
     Dosage: 263.3 MCG/DAY
     Route: 037
     Dates: start: 20151209, end: 20160104
  20. LIORESAL [Suspect]
     Active Substance: BACLOFEN
     Dosage: 300 MCG/DAY
     Route: 037
     Dates: start: 20160125, end: 20160311
  21. BACLOFEN. [Concomitant]
     Active Substance: BACLOFEN
     Dosage: 20 MG 4X/DAY
     Route: 048
  22. OXYCODONE-ACETAMINOPHEN [Concomitant]
     Active Substance: ACETAMINOPHEN\OXYCODONE HYDROCHLORIDE
     Dosage: 7.5/325 MG 2X/DAY PRN
     Route: 048
  23. TEMAZEPAM. [Concomitant]
     Active Substance: TEMAZEPAM
     Dosage: 30 MG AT BEDTIME PRN
     Route: 048
  24. VITAMIN D-3 CAPS [Concomitant]
     Route: 048
  25. TRAZADONE HYDROCHLORIDE [Concomitant]
     Active Substance: TRAZODONE HYDROCHLORIDE
     Dosage: 200 MG 1X/DAY AT BEDTIME
     Route: 048
  26. BUPROPION HCL ER (XL) [Concomitant]
     Dosage: 100 MG TAB 2X/DAY
  27. TECFIDERA [Concomitant]
     Active Substance: DIMETHYL FUMARATE
     Dosage: 240 MG 1X/DAY
     Route: 048
  28. TRAZADONE HYDROCHLORIDE [Concomitant]
     Active Substance: TRAZODONE HYDROCHLORIDE
     Dosage: 100 MG 1X/DAY AT BEDTIME
  29. TOLTERODINE TARTRATE ER [Concomitant]
     Dosage: 4 MG CAPSULE 1X/DAY
     Route: 048
  30. BIOTIN CAPS [Concomitant]
     Route: 048

REACTIONS (7)
  - Underdose [Unknown]
  - Muscle spasticity [Not Recovered/Not Resolved]
  - Muscle spasms [Unknown]
  - Therapy non-responder [Unknown]
  - Clonus [Unknown]
  - Grimacing [Unknown]
  - Device infusion issue [Unknown]

NARRATIVE: CASE EVENT DATE: 20141114
